FAERS Safety Report 13450005 (Version 1)
Quarter: 2017Q2

REPORT INFORMATION
  Report Type: Spontaneous
  Country: US (occurrence: US)
  Receive Date: 20170417
  Receipt Date: 20170417
  Transmission Date: 20170830
  Serious: No
  Sender: FDA-Public Use
  Company Number: US-BION-20160482

PATIENT
  Age: 61 Year
  Sex: Female
  Weight: 56.7 kg

DRUGS (1)
  1. ALEVE [Suspect]
     Active Substance: NAPROXEN SODIUM
     Indication: TENDONITIS
     Dosage: 2 TABLETS, TWICE DAILY
     Route: 048
     Dates: start: 201605

REACTIONS (2)
  - Incorrect drug administration duration [Unknown]
  - Product use in unapproved indication [Unknown]

NARRATIVE: CASE EVENT DATE: 20160829
